FAERS Safety Report 6378018-1 (Version None)
Quarter: 2009Q3

REPORT INFORMATION
  Report Type: 
  Country: None (occurrence: None)
  Receive Date: 20090925
  Receipt Date: 20090918
  Transmission Date: 20100115
  Serious: Yes (Hospitalization)
  Sender: FDA-Public Use
  Company Number: TR-ABBOTT-09P-161-0598140-00

PATIENT
  Age: 13 Year
  Sex: Male

DRUGS (6)
  1. DEPAKENE [Suspect]
     Indication: EPILEPSY
     Route: 048
     Dates: start: 20050101, end: 20090101
  2. DEPAKENE [Suspect]
     Route: 048
     Dates: start: 20090101
  3. RISPERDAL [Concomitant]
     Indication: STATUS EPILEPTICUS
     Route: 065
  4. RISPERDAL [Concomitant]
     Dosage: 0.50 MG
     Route: 065
  5. MOTILIUM [Concomitant]
     Indication: GASTROOESOPHAGEAL REFLUX DISEASE
     Route: 065
  6. LANSOR [Concomitant]
     Indication: GASTROOESOPHAGEAL REFLUX DISEASE
     Route: 065

REACTIONS (3)
  - DRUG INEFFECTIVE [None]
  - STATUS EPILEPTICUS [None]
  - VOMITING [None]
